FAERS Safety Report 5025888-5 (Version None)
Quarter: 2006Q2

REPORT INFORMATION
  Report Type: 
  Country: None (occurrence: None)
  Receive Date: 20060614
  Receipt Date: 20060612
  Transmission Date: 20061013
  Serious: Yes (Other)
  Sender: FDA-Public Use
  Company Number: 2006PK01246

PATIENT
  Age: 25 Year
  Sex: Male
  Weight: 87 kg

DRUGS (1)
  1. SEROQUEL [Suspect]
     Indication: PSYCHOTIC DISORDER
     Route: 048
     Dates: start: 20030401

REACTIONS (2)
  - PULMONARY EMBOLISM [None]
  - THROMBOSIS [None]
